FAERS Safety Report 6196463-4 (Version None)
Quarter: 2009Q2

REPORT INFORMATION
  Report Type: 
  Country: None (occurrence: None)
  Receive Date: 20090518
  Receipt Date: 20090518
  Transmission Date: 20091009
  Serious: No
  Sender: FDA-Public Use
  Company Number: None

PATIENT
  Age: 60 Year
  Sex: Female
  Weight: 65.7716 kg

DRUGS (1)
  1. EFFEXOR XR [Suspect]
     Indication: DEPRESSION
     Dosage: 150MG DAILY TAPER 37.5 MG/WK PO ONE MONTH TAPER
     Route: 048
     Dates: start: 20060101, end: 20090507

REACTIONS (1)
  - DRUG WITHDRAWAL SYNDROME [None]
